FAERS Safety Report 4685945-X (Version None)
Quarter: 2005Q2

REPORT INFORMATION
  Report Type: 
  Country: None (occurrence: None)
  Receive Date: 20050607
  Receipt Date: 20050607
  Transmission Date: 20051028
  Serious: No
  Sender: FDA-Public Use
  Company Number: None

PATIENT
  Sex: Female
  Weight: 45.9 kg

DRUGS (11)
  1. CISPLATIN [Suspect]
     Indication: SMALL CELL LUNG CANCER STAGE UNSPECIFIED
     Dosage: DAY 1
     Dates: start: 20050131
  2. IRINOTECAN [Suspect]
     Dosage: DAYS 1 + 8 Q 3 WEEKS WITH CONCURRENT RADIATION
  3. RADIATION [Suspect]
  4. DECLOMYCIN [Concomitant]
  5. MAGNESIUM OXIDE [Concomitant]
  6. PHENERGAN [Concomitant]
  7. ROXANOL [Concomitant]
  8. ATIVAN [Concomitant]
  9. NEXIUM [Concomitant]
  10. REGLAN [Concomitant]
  11. ZELNORM [Concomitant]

REACTIONS (14)
  - ABDOMINAL PAIN [None]
  - ABDOMINAL PAIN UPPER [None]
  - BRADYPHRENIA [None]
  - CONFUSIONAL STATE [None]
  - DEHYDRATION [None]
  - FEELING ABNORMAL [None]
  - HYPONATRAEMIA [None]
  - INAPPROPRIATE ANTIDIURETIC HORMONE SECRETION [None]
  - LUNG INFILTRATION [None]
  - NAUSEA [None]
  - OESOPHAGEAL PAIN [None]
  - RADIATION INJURY [None]
  - RADIATION OESOPHAGITIS [None]
  - ULCER [None]
